FAERS Safety Report 25403989 (Version 1)
Quarter: 2025Q2

REPORT INFORMATION
  Report Type: Spontaneous
  Country: CN (occurrence: CN)
  Receive Date: 20250606
  Receipt Date: 20250606
  Transmission Date: 20250716
  Serious: Yes (Hospitalization)
  Sender: RECORDATI
  Company Number: CN-ORPHANEU-2025003862

PATIENT
  Age: 47 Year
  Sex: Female

DRUGS (3)
  1. SILTUXIMAB [Suspect]
     Active Substance: SILTUXIMAB
     Indication: Castleman^s disease
     Dosage: 800 MILLIGRAM, QD, INJECTION (21 DAYS OF DOSING)
     Route: 041
     Dates: start: 20250511, end: 20250511
  2. CYCLOPHOSPHAMIDE [Suspect]
     Active Substance: CYCLOPHOSPHAMIDE
     Indication: Neoplasm
     Dosage: 1 GRAM, QD, POWDER FOR INJECTION, (21 DAYS OF DOSING)
     Route: 041
     Dates: start: 20250514, end: 20250514
  3. PIRARUBICIN HYDROCHLORIDE [Suspect]
     Active Substance: PIRARUBICIN HYDROCHLORIDE
     Indication: Neoplasm
     Dosage: 30 MILLIGRAM, QD, INJECTION
     Route: 041
     Dates: start: 20250512, end: 20250513

REACTIONS (3)
  - Myelosuppression [Unknown]
  - Blood fibrinogen decreased [Recovering/Resolving]
  - Fibrin D dimer increased [Recovering/Resolving]

NARRATIVE: CASE EVENT DATE: 20250501
